FAERS Safety Report 5050339-4 (Version None)
Quarter: 2006Q3

REPORT INFORMATION
  Report Type: 
  Country: None (occurrence: None)
  Receive Date: 20060706
  Receipt Date: 20060626
  Transmission Date: 20061208
  Serious: Yes (Death, Hospitalization)
  Sender: FDA-Public Use
  Company Number: 163-20785-06040127

PATIENT
  Age: 73 Year
  Sex: Male

DRUGS (20)
  1. THALOMID [Suspect]
     Indication: MULTIPLE MYELOMA
     Dosage: 200 - 300 MG, QD, ORAL
     Route: 048
     Dates: start: 20020208, end: 20050101
  2. THALOMID [Suspect]
     Indication: MULTIPLE MYELOMA
     Dosage: 200 - 300 MG, QD, ORAL
     Route: 048
     Dates: start: 20060307
  3. DOXIL [Suspect]
     Indication: MULTIPLE MYELOMA
     Dosage: 70 MG, DAILY, INTRAVENOUS
     Route: 042
     Dates: start: 20060321, end: 20060321
  4. VELCADE [Suspect]
     Indication: MULTIPLE MYELOMA
     Dates: start: 20041201
  5. CYCLOPHOSPHAMIDE [Concomitant]
  6. FLUCONAZOLE [Concomitant]
  7. FENTANYL CITRATE (POULTICE OR PATCH) [Concomitant]
  8. SENNA (SENNA) (TABLETS) [Concomitant]
  9. DEXAMETHASONE [Concomitant]
  10. LANTUS [Concomitant]
  11. PANTOPRAZOLE SODIUM [Concomitant]
  12. HUMALOG [Concomitant]
  13. METOPROLOL XL (TABLETS) [Concomitant]
  14. ACTOPLUS MET [Concomitant]
  15. CEFEPIME (CEFEPIME) [Concomitant]
  16. VANCOMYCIN [Concomitant]
  17. ZOSYN [Concomitant]
  18. ZOCOR [Concomitant]
  19. PROCRIT [Concomitant]
  20. NEXIUM [Concomitant]

REACTIONS (38)
  - ACUTE RESPIRATORY FAILURE [None]
  - ANAEMIA [None]
  - ASTHENIA [None]
  - BACK PAIN [None]
  - BLOOD CHLORIDE INCREASED [None]
  - BLOOD FIBRINOGEN INCREASED [None]
  - BRAIN MASS [None]
  - CARBON DIOXIDE DECREASED [None]
  - CARDIOMEGALY [None]
  - CONFUSIONAL STATE [None]
  - DISEASE PROGRESSION [None]
  - HAEMOPTYSIS [None]
  - HERPES ZOSTER [None]
  - HYPERCALCAEMIA [None]
  - INTERVERTEBRAL DISC PROTRUSION [None]
  - LETHARGY [None]
  - MALIGNANT NEOPLASM PROGRESSION [None]
  - METASTASES TO BONE [None]
  - MONOCLONAL IMMUNOGLOBULIN PRESENT [None]
  - MULTIPLE MYELOMA [None]
  - MUSCULAR WEAKNESS [None]
  - NUCLEAR MAGNETIC RESONANCE IMAGING ABNORMAL [None]
  - OROPHARYNGEAL CANDIDIASIS [None]
  - PLASMACYTOMA [None]
  - PLATELET COUNT DECREASED [None]
  - PLEURAL EFFUSION [None]
  - PROTHROMBIN TIME PROLONGED [None]
  - PULMONARY OEDEMA [None]
  - PYREXIA [None]
  - RENAL FAILURE ACUTE [None]
  - RENAL FAILURE CHRONIC [None]
  - SINUS DISORDER [None]
  - SPINAL CORD COMPRESSION [None]
  - SPINAL CORD HERNIATION [None]
  - SPINAL CORD OEDEMA [None]
  - STAPHYLOCOCCAL SEPSIS [None]
  - WHITE BLOOD CELL COUNT DECREASED [None]
  - WHITE BLOOD CELL COUNT INCREASED [None]
